FAERS Safety Report 5109139-9 (Version None)
Quarter: 2006Q3

REPORT INFORMATION
  Report Type: 
  Country: None (occurrence: None)
  Receive Date: 20060918
  Receipt Date: 20060830
  Transmission Date: 20061208
  Serious: Yes (Other)
  Sender: FDA-Public Use
  Company Number: US200608000089

PATIENT
  Age: 63 Year
  Sex: Female
  Weight: 68.9 kg

DRUGS (9)
  1. FORTEO [Suspect]
     Indication: OSTEOPOROSIS
     Dosage: 20 UG DAILY (1/D)
     Dates: start: 20060712
  2. VITAMIN D [Concomitant]
  3. GLUCOSAMINE W/CHONDROITIN (CHONDROITIN SULFATE, GLUCOSAMINE) [Concomitant]
  4. VITAMINS [Concomitant]
  5. MINERAL SUPPLEMENTS [Concomitant]
  6. VASOTEC [Concomitant]
  7. BUMEX [Concomitant]
  8. TRAMADOL HCL [Concomitant]
  9. OMEGA 3 (FISH OIL) [Concomitant]

REACTIONS (19)
  - ARTHRALGIA [None]
  - CELLULITIS [None]
  - CHILLS [None]
  - ERYTHEMA [None]
  - FALL [None]
  - GENERAL PHYSICAL HEALTH DETERIORATION [None]
  - HAND FRACTURE [None]
  - HEPATITIS ACUTE [None]
  - HYPERHIDROSIS [None]
  - INJECTION SITE HAEMORRHAGE [None]
  - MYALGIA [None]
  - NECK PAIN [None]
  - PHARMACEUTICAL PRODUCT COMPLAINT [None]
  - PLEURAL EFFUSION [None]
  - SEPSIS [None]
  - SINUSITIS [None]
  - SPINAL OSTEOARTHRITIS [None]
  - THORACIC VERTEBRAL FRACTURE [None]
  - WEIGHT DECREASED [None]
